FAERS Safety Report 14121682 (Version 1)
Quarter: 2017Q4

REPORT INFORMATION
  Report Type: Spontaneous
  Country: CN (occurrence: CN)
  Receive Date: 20171024
  Receipt Date: 20171024
  Transmission Date: 20180321
  Serious: Yes (Hospitalization, Other)
  Sender: FDA-Public Use
  Company Number: CN-NOVOPROD-568207

PATIENT
  Age: 57 Year
  Sex: Female
  Weight: 65 kg

DRUGS (2)
  1. NOVOLIN [Suspect]
     Active Substance: INSULIN HUMAN
     Indication: DIABETES MELLITUS MANAGEMENT
     Dosage: UNK
     Route: 058
     Dates: start: 201504, end: 201706
  2. NOVOLIN [Suspect]
     Active Substance: INSULIN HUMAN
     Indication: TYPE 2 DIABETES MELLITUS
     Dosage: 26 U, QD (8 U IN THE MORNING AND 18 U IN THE EVENING, 30 MINUTES BEFORE MEALS)
     Route: 058
     Dates: start: 20170610, end: 20170620

REACTIONS (5)
  - Blood glucose fluctuation [Unknown]
  - Lacunar infarction [Unknown]
  - Altered state of consciousness [Recovered/Resolved]
  - Hypoglycaemic coma [Recovered/Resolved]
  - Altered state of consciousness [Recovered/Resolved]

NARRATIVE: CASE EVENT DATE: 20170616
